FAERS Safety Report 18236582 (Version 1)
Quarter: 2020Q3

REPORT INFORMATION
  Report Type: Spontaneous
  Country: US (occurrence: US)
  Receive Date: 20200907
  Receipt Date: 20200907
  Transmission Date: 20201103
  Serious: No
  Sender: FDA-Public Use
  Company Number: US-ITALFARMACO SPA-2089446

PATIENT
  Age: 63 Year
  Sex: Female

DRUGS (14)
  1. PROPRANOLOL [Concomitant]
     Active Substance: PROPRANOLOL HYDROCHLORIDE
  2. SUMATRIPTAN. [Concomitant]
     Active Substance: SUMATRIPTAN
  3. NUEDEXTA [Concomitant]
     Active Substance: DEXTROMETHORPHAN HYDROBROMIDE\QUINIDINE SULFATE
  4. BIOTIN [Concomitant]
     Active Substance: BIOTIN
  5. SIMVASTATIN. [Concomitant]
     Active Substance: SIMVASTATIN
  6. VITAMIN D [Concomitant]
     Active Substance: VITAMIN D NOS
  7. TIGLUTIK [Suspect]
     Active Substance: RILUZOLE
     Indication: AMYOTROPHIC LATERAL SCLEROSIS
     Dates: start: 20200606, end: 20200817
  8. CLONAZEPAM. [Concomitant]
     Active Substance: CLONAZEPAM
  9. HALCION [Concomitant]
     Active Substance: TRIAZOLAM
  10. RADICAVA [Concomitant]
     Active Substance: EDARAVONE
  11. MIRTAZAPINE. [Concomitant]
     Active Substance: MIRTAZAPINE
  12. GLYCOPYRROLATE. [Concomitant]
     Active Substance: GLYCOPYRROLATE
  13. LEVOTHYROXINE. [Concomitant]
     Active Substance: LEVOTHYROXINE
  14. MIRALAX [Concomitant]
     Active Substance: POLYETHYLENE GLYCOL 3350

REACTIONS (2)
  - Asthenia [Not Recovered/Not Resolved]
  - Fatigue [Not Recovered/Not Resolved]
